FAERS Safety Report 5353303-0 (Version None)
Quarter: 2007Q2

REPORT INFORMATION
  Report Type: 
  Country: None (occurrence: None)
  Receive Date: 20070518
  Receipt Date: 20070302
  Transmission Date: 20071010
  Serious: No
  Sender: FDA-Public Use
  Company Number: TPA2007A00534

PATIENT
  Age: 5 Decade
  Sex: Male

DRUGS (1)
  1. ROZEREM [Suspect]
     Dosage: 8 MG, QHS, PER ORAL
     Route: 048

REACTIONS (1)
  - NIGHTMARE [None]
